FAERS Safety Report 25231179 (Version 4)
Quarter: 2025Q4

REPORT INFORMATION
  Report Type: Spontaneous
  Country: US (occurrence: US)
  Receive Date: 20250423
  Receipt Date: 20251127
  Transmission Date: 20260118
  Serious: No
  Sender: SANOFI AVENTIS
  Company Number: US-SA-2025SA114746

PATIENT
  Age: 79 Year
  Sex: Female

DRUGS (3)
  1. DUPIXENT [Suspect]
     Active Substance: DUPILUMAB
     Indication: Nasal polyps
     Dosage: 600 MG, 1X
     Route: 058
     Dates: start: 20250108, end: 20250108
  2. DUPIXENT [Suspect]
     Active Substance: DUPILUMAB
     Indication: Asthma
     Dosage: 300 MG, QOW
     Route: 058
     Dates: start: 20250122, end: 2025
  3. MUCINEX [Concomitant]
     Active Substance: GUAIFENESIN

REACTIONS (13)
  - Rhinorrhoea [Not Recovered/Not Resolved]
  - Rebound effect [Not Recovered/Not Resolved]
  - Anosmia [Unknown]
  - Nasal congestion [Not Recovered/Not Resolved]
  - Condition aggravated [Not Recovered/Not Resolved]
  - Mucosal discolouration [Not Recovered/Not Resolved]
  - Sneezing [Not Recovered/Not Resolved]
  - Product dose omission issue [Unknown]
  - Obstruction [Unknown]
  - Eye disorder [Unknown]
  - Seborrhoea [Unknown]
  - Product dose omission in error [Unknown]
  - Surgery [Unknown]

NARRATIVE: CASE EVENT DATE: 20250101
